FAERS Safety Report 18515087 (Version 2)
Quarter: 2021Q4

REPORT INFORMATION
  Report Type: Spontaneous
  Country: US (occurrence: US)
  Receive Date: 20201118
  Receipt Date: 20211129
  Transmission Date: 20220304
  Serious: No
  Sender: FDA-Public Use
  Company Number: US-UCBSA-2020033520

PATIENT
  Sex: Male
  Weight: 82 kg

DRUGS (1)
  1. VIMPAT [Suspect]
     Active Substance: LACOSAMIDE
     Indication: Seizure
     Dosage: UNK UNK, 2X/DAY (BID)
     Route: 048
     Dates: start: 202008, end: 202008

REACTIONS (2)
  - Product availability issue [Unknown]
  - Therapy interrupted [Unknown]
